FAERS Safety Report 10923197 (Version 2)
Quarter: 2015Q3

REPORT INFORMATION
  Report Type: Spontaneous
  Country: US (occurrence: US)
  Receive Date: 20150317
  Receipt Date: 20150701
  Transmission Date: 20151125
  Serious: Yes (Hospitalization)
  Sender: FDA-Public Use
  Company Number: US-BAYER-2015-044095

PATIENT
  Age: 34 Year
  Sex: Female
  Weight: 70.3 kg

DRUGS (3)
  1. PAROXETINE [Concomitant]
     Active Substance: PAROXETINE\PAROXETINE HYDROCHLORIDE
  2. TOPIRAMATE. [Concomitant]
     Active Substance: TOPIRAMATE
  3. MIRENA [Suspect]
     Active Substance: LEVONORGESTREL
     Indication: CONTRACEPTION
     Dosage: 20 MCG/24HR, CONT
     Route: 015
     Dates: start: 20111216, end: 20130501

REACTIONS (10)
  - Device breakage [None]
  - Injury [None]
  - Emotional distress [None]
  - Complication of device removal [None]
  - Embedded device [None]
  - Medical device discomfort [None]
  - Anxiety [None]
  - Device difficult to use [None]
  - Pain [None]
  - Depression [None]

NARRATIVE: CASE EVENT DATE: 20130403
